FAERS Safety Report 9695962 (Version 1)
Quarter: 2013Q4

REPORT INFORMATION
  Report Type: Spontaneous
  Country: US (occurrence: US)
  Receive Date: 20131119
  Receipt Date: 20131119
  Transmission Date: 20140711
  Serious: No
  Sender: FDA-Public Use
  Company Number: US-BAYER-2013-141178

PATIENT
  Age: 82 Year
  Sex: Female
  Weight: 77 kg

DRUGS (3)
  1. ALEVE CAPLET [Suspect]
     Indication: BACK PAIN
     Dosage: 1 DF, TID
     Route: 048
     Dates: start: 2010
  2. XANAX [Concomitant]
  3. FISH OIL [Concomitant]

REACTIONS (1)
  - Incorrect drug administration duration [None]
